FAERS Safety Report 4725865-5 (Version None)
Quarter: 2005Q3

REPORT INFORMATION
  Report Type: 
  Country: None (occurrence: None)
  Receive Date: 20050725
  Receipt Date: 20050725
  Transmission Date: 20060218
  Serious: Yes (Hospitalization)
  Sender: FDA-Public Use
  Company Number: None

PATIENT
  Age: 42 Year
  Sex: Male

DRUGS (2)
  1. SUSTIVA [Suspect]
  2. EPZICOM [Suspect]

REACTIONS (3)
  - PARAESTHESIA [None]
  - RASH [None]
  - SKIN HYPERPIGMENTATION [None]
